FAERS Safety Report 4619017-7 (Version None)
Quarter: 2005Q1

REPORT INFORMATION
  Report Type: 
  Country: None (occurrence: None)
  Receive Date: 20050325
  Receipt Date: 20050310
  Transmission Date: 20050727
  Serious: Yes (Hospitalization)
  Sender: FDA-Public Use
  Company Number: US-BRISTOL-MYERS SQUIBB COMPANY-12893491

PATIENT
  Age: 84 Year
  Sex: Female
  Weight: 45 kg

DRUGS (4)
  1. CETUXIMAB [Suspect]
     Indication: NON-SMALL CELL LUNG CANCER
     Dosage: 4316MG TOTAL THIS COURSE
     Route: 042
     Dates: start: 20050221, end: 20050221
  2. PACLITAXEL [Suspect]
     Indication: NON-SMALL CELL LUNG CANCER
     Dosage: 624MG TOTAL THIS COURSE
     Route: 042
     Dates: start: 20050214, end: 20050214
  3. CARBOPLATIN [Suspect]
     Indication: NON-SMALL CELL LUNG CANCER
     Dosage: AUC 6. 1087MG TOTAL THIS COURSE
     Route: 042
     Dates: start: 20050214, end: 20050214
  4. RADIATION THERAPY [Suspect]
     Indication: NON-SMALL CELL LUNG CANCER
     Dosage: 63GY/35. 6200CGY TOTAL DOSE THIS COURSE

REACTIONS (12)
  - ANAEMIA [None]
  - ARRHYTHMIA [None]
  - BLOOD MAGNESIUM DECREASED [None]
  - BLOOD SODIUM DECREASED [None]
  - CONFUSIONAL STATE [None]
  - DYSPNOEA [None]
  - FATIGUE [None]
  - FEBRILE NEUTROPENIA [None]
  - HAEMOGLOBIN DECREASED [None]
  - NEUTROPHIL COUNT DECREASED [None]
  - PNEUMONIA [None]
  - TACHYCARDIA [None]
